FAERS Safety Report 4263213-8 (Version None)
Quarter: 2004Q1

REPORT INFORMATION
  Report Type: 
  Country: None (occurrence: None)
  Receive Date: 20040105
  Receipt Date: 20031224
  Transmission Date: 20041129
  Serious: Yes (Hospitalization)
  Sender: FDA-Public Use
  Company Number: NL-BRISTOL-MYERS SQUIBB COMPANY-12464996

PATIENT
  Age: 77 Year
  Sex: Male

DRUGS (3)
  1. CISPLATIN [Suspect]
     Indication: GERM CELL CANCER
     Route: 042
     Dates: start: 20030520, end: 20030520
  2. ETOPOSIDE [Suspect]
     Indication: GERM CELL CANCER
     Route: 042
     Dates: start: 20030520, end: 20030520
  3. BLEOMYCIN SULFATE [Suspect]
     Indication: GERM CELL CANCER
     Route: 042
     Dates: start: 20030530, end: 20030530

REACTIONS (1)
  - FEBRILE NEUTROPENIA [None]
